FAERS Safety Report 6887551-5 (Version None)
Quarter: 2010Q3

REPORT INFORMATION
  Report Type: 
  Country: None (occurrence: None)
  Receive Date: 20100708
  Receipt Date: 20100118
  Transmission Date: 20110219
  Serious: Yes (Other)
  Sender: FDA-Public Use
  Company Number: 2009316314

PATIENT
  Age: 53 Year
  Sex: Female
  Weight: 81.6 kg

DRUGS (2)
  1. CHANTIX [Suspect]
     Indication: SMOKING CESSATION THERAPY
     Dosage: 0.5 MG, 1X/DAY, ORAL : 0.5 MG, 2X/DAY, ORAL
     Route: 048
     Dates: start: 20090504, end: 20090501
  2. CHANTIX [Suspect]
     Indication: SMOKING CESSATION THERAPY
     Dosage: 0.5 MG, 1X/DAY, ORAL : 0.5 MG, 2X/DAY, ORAL
     Route: 048
     Dates: start: 20090501, end: 20090503

REACTIONS (6)
  - DEPRESSION [None]
  - HEADACHE [None]
  - ILLOGICAL THINKING [None]
  - IRRITABILITY [None]
  - NAUSEA [None]
  - SUICIDAL IDEATION [None]
